FAERS Safety Report 11246357 (Version 5)
Quarter: 2015Q4

REPORT INFORMATION
  Report Type: Spontaneous
  Country: HU (occurrence: HU)
  Receive Date: 20150708
  Receipt Date: 20151207
  Transmission Date: 20160304
  Serious: Yes (Other)
  Sender: FDA-Public Use
  Company Number: HU-PFIZER INC-2015114925

PATIENT
  Age: 74 Year
  Sex: Male

DRUGS (3)
  1. SUTENT [Suspect]
     Active Substance: SUNITINIB MALATE
     Indication: RENAL CANCER
     Dosage: 50 MG, 1X/DAY, BASED ON A 4/2 SCHEME (BETWEEN 1-5 CYCLES)
     Route: 048
     Dates: start: 20141214
  2. SUTENT [Suspect]
     Active Substance: SUNITINIB MALATE
     Dosage: 50 MG, CYCLIC, DAILY, BASED ON A 2/1 SCHEMA (FROM THE 6TH CYCLE)
     Route: 048
     Dates: start: 20150629
  3. SUTENT [Suspect]
     Active Substance: SUNITINIB MALATE
     Dosage: 50 MG 1X/DAY, CYCLIC BASED ON A 4/2 SCHEME (BETWEEN 1-5 CYCLES)
     Route: 048
     Dates: start: 20150406, end: 20150614

REACTIONS (13)
  - Animal bite [Not Recovered/Not Resolved]
  - Palmar-plantar erythrodysaesthesia syndrome [Recovered/Resolved]
  - Wound infection [Not Recovered/Not Resolved]
  - Diarrhoea [Recovered/Resolved]
  - Gingival pain [Not Recovered/Not Resolved]
  - Haematochezia [Recovered/Resolved]
  - Weight decreased [Recovered/Resolved]
  - Hyperkeratosis [Recovered/Resolved]
  - Glossodynia [Not Recovered/Not Resolved]
  - Oral pain [Not Recovered/Not Resolved]
  - Gait disturbance [Recovered/Resolved]
  - Fatigue [Not Recovered/Not Resolved]
  - Decreased appetite [Not Recovered/Not Resolved]

NARRATIVE: CASE EVENT DATE: 20150318
